FAERS Safety Report 10020065 (Version 2)
Quarter: 2014Q1

REPORT INFORMATION
  Report Type: Spontaneous
  Country: US (occurrence: US)
  Receive Date: 20140318
  Receipt Date: 20140318
  Transmission Date: 20141002
  Serious: Yes (Other)
  Sender: FDA-Public Use
  Company Number: US-GE HEALTHCARE MEDICAL DIAGNOSTICS-OSCN-PR-0805S-0320

PATIENT
  Age: 58 Year
  Sex: Male

DRUGS (5)
  1. OMNISCAN [Suspect]
     Indication: DEAFNESS
     Route: 042
     Dates: start: 20060126, end: 20060126
  2. OMNISCAN [Suspect]
     Indication: BRAIN NEOPLASM
     Route: 042
     Dates: start: 20060509, end: 20060509
  3. OMNISCAN [Suspect]
     Dates: start: 20060818, end: 20060818
  4. MULTIHANCE [Suspect]
     Indication: PRODUCT USED FOR UNKNOWN INDICATION
     Route: 042
     Dates: start: 20070612, end: 20070612
  5. ERYTHROPOETIN [Concomitant]

REACTIONS (1)
  - Nephrogenic systemic fibrosis [Not Recovered/Not Resolved]
